FAERS Safety Report 16547532 (Version 1)
Quarter: 2019Q3

REPORT INFORMATION
  Report Type: Spontaneous
  Country: US (occurrence: US)
  Receive Date: 20190709
  Receipt Date: 20190709
  Transmission Date: 20191004
  Serious: No
  Sender: FDA-Public Use
  Company Number: US-SA-2019SA184576

PATIENT
  Sex: Female

DRUGS (15)
  1. MOVIPREP [ASCORBIC ACID;MACROGOL 4000;POTASSIUM CHLORIDE;SODIUM ASCORB [Concomitant]
  2. METFORMIN HCL [Concomitant]
     Active Substance: METFORMIN HYDROCHLORIDE
  3. FENTANYL. [Concomitant]
     Active Substance: FENTANYL
  4. OMEPRAZOLE. [Concomitant]
     Active Substance: OMEPRAZOLE
  5. LOPERAMIDE HCL [Concomitant]
     Active Substance: LOPERAMIDE HYDROCHLORIDE
  6. DULOXETINE HCL [Concomitant]
     Active Substance: DULOXETINE HYDROCHLORIDE
  7. OPIUM [PAPAVER SOMNIFERUM] [Concomitant]
     Active Substance: OPIUM
  8. FLUCONAZOLE. [Concomitant]
     Active Substance: FLUCONAZOLE
  9. RISPERIDONE. [Concomitant]
     Active Substance: RISPERIDONE
  10. LANTUS [Concomitant]
     Active Substance: INSULIN GLARGINE
  11. ALPRAZOLAM. [Concomitant]
     Active Substance: ALPRAZOLAM
  12. DOXEPIN HCL [Concomitant]
     Active Substance: DOXEPIN HYDROCHLORIDE
  13. FENOFIBRATE. [Concomitant]
     Active Substance: FENOFIBRATE
  14. KEVZARA [Suspect]
     Active Substance: SARILUMAB
     Dosage: 200 MG, QOW
     Route: 058
  15. SULFAMETHOXAZOLE AND TRIMETHOPRIM [Concomitant]
     Active Substance: SULFAMETHOXAZOLE\TRIMETHOPRIM

REACTIONS (1)
  - Injection site erythema [Not Recovered/Not Resolved]
